FAERS Safety Report 14067539 (Version 1)
Quarter: 2017Q4

REPORT INFORMATION
  Report Type: Spontaneous
  Country: US (occurrence: US)
  Receive Date: 20171008
  Receipt Date: 20171008
  Transmission Date: 20180321
  Serious: Yes (Hospitalization)
  Sender: FDA-Public Use
  Company Number: None

PATIENT
  Age: 48 Year
  Sex: Female
  Weight: 73.35 kg

DRUGS (4)
  1. NEXIUM [Concomitant]
     Active Substance: ESOMEPRAZOLE MAGNESIUM
  2. METRONIDAZOLE 500MG [Suspect]
     Active Substance: METRONIDAZOLE
     Indication: BACTERIAL VAGINOSIS
     Route: 048
     Dates: start: 20171003, end: 20171008
  3. ZYRTEC [Concomitant]
     Active Substance: CETIRIZINE HYDROCHLORIDE
  4. VALTREX [Concomitant]
     Active Substance: VALACYCLOVIR HYDROCHLORIDE

REACTIONS (3)
  - Dizziness [None]
  - Photophobia [None]
  - Loss of consciousness [None]

NARRATIVE: CASE EVENT DATE: 20171007
